FAERS Safety Report 19570966 (Version 1)
Quarter: 2021Q3

REPORT INFORMATION
  Report Type: Spontaneous
  Country: DE (occurrence: DE)
  Receive Date: 20210716
  Receipt Date: 20210716
  Transmission Date: 20211014
  Serious: Yes (Death)
  Sender: FDA-Public Use
  Company Number: DE-ABBVIE-21K-062-3991237-00

PATIENT
  Age: 64 Year
  Sex: Female

DRUGS (6)
  1. VENETOCLAX. [Suspect]
     Active Substance: VENETOCLAX
     Indication: PLASMA CELL MYELOMA
     Route: 048
     Dates: start: 201902, end: 2019
  2. DARATUMUMAB [Concomitant]
     Active Substance: DARATUMUMAB
     Indication: PLASMA CELL MYELOMA
  3. DECITABINE. [Concomitant]
     Active Substance: DECITABINE
     Indication: ACUTE MYELOID LEUKAEMIA
     Dates: start: 201902, end: 2019
  4. DARATUMUMAB [Concomitant]
     Active Substance: DARATUMUMAB
     Indication: ACUTE MYELOID LEUKAEMIA
     Dosage: 2ND LINE
     Dates: start: 2019
  5. VENETOCLAX. [Suspect]
     Active Substance: VENETOCLAX
     Indication: ACUTE MYELOID LEUKAEMIA
     Route: 048
     Dates: start: 201906
  6. DECITABINE. [Concomitant]
     Active Substance: DECITABINE
     Indication: PLASMA CELL MYELOMA
     Dates: start: 201906

REACTIONS (2)
  - Plasma cell myeloma [Fatal]
  - Transformation to acute myeloid leukaemia [Fatal]

NARRATIVE: CASE EVENT DATE: 201908
